FAERS Safety Report 9392271 (Version 2)
Quarter: 2013Q3

REPORT INFORMATION
  Report Type: Spontaneous
  Country: US (occurrence: US)
  Receive Date: 20130710
  Receipt Date: 20130711
  Transmission Date: 20140515
  Serious: Yes (Death, Hospitalization, Other)
  Sender: FDA-Public Use
  Company Number: US-ROCHE-1246335

PATIENT
  Sex: Female

DRUGS (1)
  1. VALCYTE [Suspect]
     Indication: ANTIVIRAL PROPHYLAXIS
     Route: 065

REACTIONS (3)
  - Cerebral thrombosis [Fatal]
  - Cystitis [Unknown]
  - Hip fracture [Unknown]
